FAERS Safety Report 24941978 (Version 1)
Quarter: 2025Q1

REPORT INFORMATION
  Report Type: Spontaneous
  Country: US (occurrence: None)
  Receive Date: 20250206
  Receipt Date: 20250206
  Transmission Date: 20250409
  Serious: Yes (Hospitalization)
  Sender: FDA-CTU
  Company Number: None

PATIENT
  Age: 48 Year
  Sex: Male
  Weight: 81 kg

DRUGS (1)
  1. SILDENAFIL [Suspect]
     Active Substance: SILDENAFIL

REACTIONS (4)
  - Dysphagia [None]
  - Burning sensation [None]
  - Sensory disturbance [None]
  - Oropharyngeal pain [None]

NARRATIVE: CASE EVENT DATE: 20250205
